FAERS Safety Report 5777172-X (Version None)
Quarter: 2008Q2

REPORT INFORMATION
  Report Type: 
  Country: None (occurrence: None)
  Receive Date: 20080617
  Receipt Date: 20080617
  Transmission Date: 20081010
  Serious: Yes (Death, Life-Threatening, Hospitalization)
  Sender: FDA-Public Use
  Company Number: None

PATIENT
  Age: 76 Year
  Sex: Female
  Weight: 36.2878 kg

DRUGS (1)
  1. DIGITEK MYLAN [Suspect]
     Indication: ARRHYTHMIA
     Dosage: VARIOUS PO
     Route: 048
     Dates: start: 20060119, end: 20080426

REACTIONS (2)
  - PHARMACEUTICAL PRODUCT COMPLAINT [None]
  - THERAPEUTIC AGENT TOXICITY [None]
